FAERS Safety Report 14984835 (Version 1)
Quarter: 2018Q2

REPORT INFORMATION
  Report Type: Spontaneous
  Country: US (occurrence: US)
  Receive Date: 20180607
  Receipt Date: 20180607
  Transmission Date: 20180711
  Serious: No
  Sender: FDA-Public Use
  Company Number: US-FOUNDATIONCONSUMERHC-2018-US-005961

PATIENT
  Age: 33 Year
  Sex: Female
  Weight: 133.81 kg

DRUGS (2)
  1. PLAN B ONE-STEP [Suspect]
     Active Substance: LEVONORGESTREL
     Indication: POST COITAL CONTRACEPTION
     Dosage: 1.5MG
     Route: 048
     Dates: start: 20180320, end: 20180320
  2. FEMALE HARMONY SUPPLEMENT [Concomitant]
     Dosage: TAKE 2 CAPSULES DAILY FOR 3 MONTHS. MAY BE TAKEN DAILY FOR 2-6 MONTHS.
     Route: 048

REACTIONS (3)
  - Dysmenorrhoea [Recovered/Resolved]
  - Menstruation delayed [Not Recovered/Not Resolved]
  - Mood swings [Not Recovered/Not Resolved]

NARRATIVE: CASE EVENT DATE: 20180408
